FAERS Safety Report 4791127-3 (Version None)
Quarter: 2005Q4

REPORT INFORMATION
  Report Type: 
  Country: None (occurrence: None)
  Receive Date: 20051007
  Receipt Date: 20050803
  Transmission Date: 20060501
  Serious: Yes (Other)
  Sender: FDA-Public Use
  Company Number: US-GILEAD-2005-0008587

PATIENT
  Sex: Male
  Weight: 98.6 kg

DRUGS (11)
  1. TENOFOVIR DISOPROXIL FUMARATE [Suspect]
     Indication: HIV INFECTION
     Route: 048
     Dates: start: 20050806
  2. TENOFOVIR DISOPROXIL FUMARATE [Suspect]
     Route: 048
     Dates: start: 20050131, end: 20050727
  3. EMTRICITABINE [Suspect]
     Indication: HIV INFECTION
     Route: 048
     Dates: start: 20050131, end: 20050727
  4. EMTRICITABINE [Suspect]
     Route: 048
     Dates: start: 20050806
  5. KALETRA [Suspect]
     Indication: HIV INFECTION
     Route: 048
     Dates: start: 20050131, end: 20050727
  6. KALETRA [Suspect]
     Route: 048
     Dates: start: 20050806
  7. MULTI-VITAMIN [Concomitant]
     Route: 048
     Dates: start: 20020101
  8. ASCORBIC ACID [Concomitant]
     Route: 048
     Dates: start: 20020101
  9. VITAMIN B COMPLEX CAP [Concomitant]
     Route: 048
     Dates: start: 20020101
  10. VITAMIN E [Concomitant]
     Route: 048
     Dates: start: 20020101
  11. ASPIRIN [Concomitant]
     Route: 048
     Dates: start: 20020101

REACTIONS (3)
  - ALCOHOL USE [None]
  - BLOOD TRIGLYCERIDES INCREASED [None]
  - LIPASE INCREASED [None]
